FAERS Safety Report 10428282 (Version 2)
Quarter: 2014Q4

REPORT INFORMATION
  Report Type: Spontaneous
  Country: DE (occurrence: DE)
  Receive Date: 20140903
  Receipt Date: 20141031
  Transmission Date: 20150528
  Serious: Yes (Death, Other)
  Sender: FDA-Public Use
  Company Number: DE-TEVA-504993GER

PATIENT
  Age: 9 Day
  Sex: Male
  Weight: 3 kg

DRUGS (1)
  1. VINCRISTIN [Suspect]
     Active Substance: VINCRISTINE
     Indication: ANGIOSARCOMA
     Route: 042
     Dates: start: 20131213

REACTIONS (4)
  - Acute hepatic failure [Fatal]
  - Hepatic enzyme increased [Unknown]
  - Cardiac failure [Fatal]
  - Ammonia increased [Unknown]

NARRATIVE: CASE EVENT DATE: 20131214
